FAERS Safety Report 14461335 (Version 1)
Quarter: 2018Q1

REPORT INFORMATION
  Report Type: Report from Study
  Country: DE (occurrence: DE)
  Receive Date: 20180130
  Receipt Date: 20180130
  Transmission Date: 20180509
  Serious: Yes (Hospitalization)
  Sender: FDA-Public Use
  Company Number: DE-TEVA-2018-DE-850001

PATIENT
  Age: 68 Year
  Sex: Male
  Weight: 82 kg

DRUGS (13)
  1. ABRAXANE [Suspect]
     Active Substance: PACLITAXEL
     Indication: NON-SMALL CELL LUNG CANCER
     Dosage: 2400 MILLIGRAM/SQ. METER
     Route: 041
     Dates: start: 20161006, end: 20171027
  2. FORMO LICH [Concomitant]
     Indication: PROPHYLAXIS
     Dosage: 24 DOSAGE FORMS DAILY; 24 DF
     Route: 048
  3. CARBOPLATIN. [Suspect]
     Active Substance: CARBOPLATIN
     Indication: NON-SMALL CELL LUNG CANCER
     Dosage: 5 MG/ML/MIN
     Route: 041
     Dates: start: 20161006, end: 20161208
  4. SIMVAHEXAL [Concomitant]
     Active Substance: SIMVASTATIN
     Indication: PROPHYLAXIS
     Dosage: 40 DOSAGE FORMS DAILY; 40 DF
     Route: 048
  5. IREBECOR [Concomitant]
     Indication: PROPHYLAXIS
     Dosage: 150 DOSAGE FORMS DAILY; 150 DF
     Route: 048
  6. NOVALGIN (METAMIZOLE SODIUM) [Concomitant]
     Active Substance: METAMIZOLE SODIUM
     Indication: PROPHYLAXIS
     Dosage: 2000
     Route: 048
  7. TADIN [Concomitant]
     Indication: PROPHYLAXIS
     Dosage: .4 DOSAGE FORMS DAILY; 0.4 DF
     Route: 048
  8. METFORMIN [Concomitant]
     Active Substance: METFORMIN HYDROCHLORIDE
     Indication: PROPHYLAXIS
     Dosage: 1000 DOSAGE FORMS DAILY; 1000 DF
     Route: 048
  9. PREGABALIN. [Concomitant]
     Active Substance: PREGABALIN
     Indication: PROPHYLAXIS
     Route: 048
  10. ABRAXANE [Suspect]
     Active Substance: PACLITAXEL
     Dosage: 2400 MILLIGRAM/SQ. METER
     Route: 041
     Dates: start: 20161103, end: 20161215
  11. ZOFRAN [Concomitant]
     Active Substance: ONDANSETRON HYDROCHLORIDE
     Indication: PROPHYLAXIS
     Dosage: 16 DOSAGE FORMS DAILY; 16 DF
     Route: 048
  12. BERODUAL [Concomitant]
     Active Substance: FENOTEROL HYDROBROMIDE\IPRATROPIUM BROMIDE
     Indication: PROPHYLAXIS
     Route: 055
  13. HYDROMORPHON [Concomitant]
     Active Substance: HYDROMORPHONE
     Indication: PROPHYLAXIS
     Dosage: 24 DOSAGE FORMS DAILY; 24 DF
     Route: 048

REACTIONS (1)
  - Febrile neutropenia [Recovered/Resolved]

NARRATIVE: CASE EVENT DATE: 20161107
